FAERS Safety Report 11471783 (Version 1)
Quarter: 2015Q3

REPORT INFORMATION
  Report Type: Spontaneous
  Country: KR (occurrence: KR)
  Receive Date: 20150908
  Receipt Date: 20150908
  Transmission Date: 20151125
  Serious: Yes (Hospitalization)
  Sender: FDA-Public Use
  Company Number: KR-JNJFOC-20150900957

PATIENT
  Age: 5 Month
  Sex: Male
  Weight: 5.7 kg

DRUGS (1)
  1. INFLIXIMAB, RECOMBINANT [Suspect]
     Active Substance: INFLIXIMAB
     Indication: KAWASAKI^S DISEASE
     Route: 042

REACTIONS (4)
  - Bacterial sepsis [Recovered/Resolved]
  - Off label use [Unknown]
  - Therapeutic response unexpected [Unknown]
  - Product use issue [Unknown]
